FAERS Safety Report 17714145 (Version 2)
Quarter: 2020Q2

REPORT INFORMATION
  Report Type: Spontaneous
  Country: JP (occurrence: JP)
  Receive Date: 20200427
  Receipt Date: 20200518
  Transmission Date: 20200714
  Serious: Yes (Other)
  Sender: FDA-Public Use
  Company Number: JP-JNJFOC-20200431297

PATIENT
  Age: 95 Year
  Sex: Female

DRUGS (4)
  1. YOKUKANSAN [Concomitant]
     Active Substance: HERBALS
     Dosage: UNKNOWN
     Route: 048
  2. REMINYL [Suspect]
     Active Substance: GALANTAMINE
     Indication: DEMENTIA ALZHEIMER^S TYPE
     Route: 048
     Dates: end: 20200422
  3. MEMANTINE HYDROCHLORIDE. [Concomitant]
     Active Substance: MEMANTINE HYDROCHLORIDE
     Dosage: UNKNOWN
     Route: 065
  4. ROZEREM [Concomitant]
     Active Substance: RAMELTEON
     Dosage: UNKNOWN
     Route: 065

REACTIONS (1)
  - Delirium [Unknown]

NARRATIVE: CASE EVENT DATE: 20200420
